FAERS Safety Report 18272610 (Version 1)
Quarter: 2020Q3

REPORT INFORMATION
  Report Type: Report from Study
  Country: US (occurrence: US)
  Receive Date: 20200916
  Receipt Date: 20200916
  Transmission Date: 20201103
  Serious: Yes (Other)
  Sender: FDA-Public Use
  Company Number: US-JNJFOC-20200918738

PATIENT

DRUGS (2)
  1. REMICADE [Suspect]
     Active Substance: INFLIXIMAB
     Indication: CROHN^S DISEASE
  2. REMICADE [Suspect]
     Active Substance: INFLIXIMAB
     Indication: COLITIS ULCERATIVE
     Route: 064

REACTIONS (9)
  - Blindness [Unknown]
  - Hypoacusis [Unknown]
  - Underweight [Unknown]
  - Foetal exposure during pregnancy [Unknown]
  - VACTERL syndrome [Unknown]
  - Developmental delay [Unknown]
  - Premature baby [Not Recovered/Not Resolved]
  - Congenital anomaly [Unknown]
  - Respiratory tract infection [Unknown]
